FAERS Safety Report 14613508 (Version 1)
Quarter: 2018Q1

REPORT INFORMATION
  Report Type: Report from Study
  Country: DE (occurrence: DE)
  Receive Date: 20180308
  Receipt Date: 20180308
  Transmission Date: 20180509
  Serious: Yes (Other)
  Sender: FDA-Public Use
  Company Number: DE-PFIZER INC-2018093713

PATIENT
  Age: 53 Year
  Sex: Male
  Weight: 77 kg

DRUGS (6)
  1. PANITUMUMAB [Suspect]
     Active Substance: PANITUMUMAB
     Dosage: 468 MG, UNK
     Route: 042
     Dates: start: 20170220
  2. DOXYCYCLINE. [Concomitant]
     Active Substance: DOXYCYCLINE
     Indication: PROPHYLAXIS
     Dosage: 100 MG, BID
     Route: 048
     Dates: start: 20170220, end: 20170303
  3. CALCIUM FOLINATE [Suspect]
     Active Substance: LEUCOVORIN CALCIUM
     Indication: COLORECTAL CANCER METASTATIC
     Dosage: 784 MG, UNK
     Route: 042
     Dates: start: 20170220
  4. PANITUMUMAB [Suspect]
     Active Substance: PANITUMUMAB
     Indication: COLORECTAL CANCER METASTATIC
     Dosage: 370 MG, UNK
     Route: 042
     Dates: start: 20170306
  5. OXALIPLATIN. [Suspect]
     Active Substance: OXALIPLATIN
     Indication: COLORECTAL CANCER METASTATIC
     Dosage: 167 MG, UNK
     Route: 042
     Dates: start: 20170220, end: 20170220
  6. 5-FLUOROURACIL /00098801/ [Suspect]
     Active Substance: FLUOROURACIL
     Indication: COLORECTAL CANCER METASTATIC
     Dosage: 784 MG, UNK
     Route: 042
     Dates: start: 20170220

REACTIONS (1)
  - Dermatitis acneiform [Recovered/Resolved with Sequelae]

NARRATIVE: CASE EVENT DATE: 20170306
